FAERS Safety Report 11129998 (Version 1)
Quarter: 2015Q2

REPORT INFORMATION
  Report Type: Spontaneous
  Country: GB (occurrence: GB)
  Receive Date: 20150521
  Receipt Date: 20150521
  Transmission Date: 20150821
  Serious: Yes (Other)
  Sender: FDA-Public Use
  Company Number: GB-MYLANLABS-2015M1015887

PATIENT

DRUGS (3)
  1. MIRTAZAPINE MYLAN [Interacting]
     Active Substance: MIRTAZAPINE
     Indication: DEPRESSION
     Dosage: 15 MG, QD
     Route: 048
  2. TAMOXIFEN GENERICS 20 MG TABLETS BP [Suspect]
     Active Substance: TAMOXIFEN
     Indication: BREAST CANCER
     Dosage: 20 MG, QD
     Route: 048
     Dates: start: 201410
  3. MIRTAZAPINE MYLAN [Interacting]
     Active Substance: MIRTAZAPINE
     Dosage: 30 MG, QD
     Route: 048

REACTIONS (2)
  - Breast mass [Not Recovered/Not Resolved]
  - Drug interaction [Unknown]
